FAERS Safety Report 5994098-7 (Version None)
Quarter: 2008Q4

REPORT INFORMATION
  Report Type: 
  Country: None (occurrence: None)
  Receive Date: 20081212
  Receipt Date: 20081202
  Transmission Date: 20090506
  Serious: Yes (Hospitalization)
  Sender: FDA-Public Use
  Company Number: IT-BAXTER-2008BH013320

PATIENT
  Age: 85 Year
  Sex: Male

DRUGS (3)
  1. ALBUMIN (HUMAN) [Suspect]
     Indication: DRUG USE FOR UNKNOWN INDICATION
     Route: 042
     Dates: start: 20081108, end: 20081121
  2. CITOFOLIN [Concomitant]
     Route: 048
  3. CEFIXORAL [Concomitant]
     Route: 048

REACTIONS (1)
  - HYPERSENSITIVITY [None]
